FAERS Safety Report 13050712 (Version 1)
Quarter: 2016Q4

REPORT INFORMATION
  Report Type: Spontaneous
  Country: US (occurrence: US)
  Receive Date: 20161221
  Receipt Date: 20161221
  Transmission Date: 20170207
  Serious: Yes (Other)
  Sender: FDA-Public Use
  Company Number: US-PFIZER INC-2016584169

PATIENT
  Age: 43 Year
  Sex: Male

DRUGS (2)
  1. SUMATRIPTAN SUCCINATE. [Suspect]
     Active Substance: SUMATRIPTAN SUCCINATE
     Dosage: UNK (ABUSE OR DAILY USE)
  2. MIDRIN /00450801/ [Suspect]
     Active Substance: ACETAMINOPHEN\DICHLORALPHENAZONE\ISOMETHEPTENE HYDROCHLORIDE
     Dosage: UNK (ABUSE OR DAILY USE)

REACTIONS (1)
  - Reversible cerebral vasoconstriction syndrome [Recovered/Resolved]
